FAERS Safety Report 21785031 (Version 1)
Quarter: 2022Q4

REPORT INFORMATION
  Report Type: Spontaneous
  Country: FR (occurrence: FR)
  Receive Date: 20221227
  Receipt Date: 20221227
  Transmission Date: 20230113
  Serious: Yes (Death, Hospitalization, Other)
  Sender: FDA-Public Use
  Company Number: None

PATIENT
  Age: 51 Year
  Sex: Female
  Weight: 83 kg

DRUGS (4)
  1. EPIRUBICIN HYDROCHLORIDE [Suspect]
     Active Substance: EPIRUBICIN HYDROCHLORIDE
     Indication: Breast cancer
     Dosage: 90 MG/M2, CYCLIC (D1 - D21)
     Route: 042
     Dates: start: 20221013, end: 20221202
  2. EMEND [Suspect]
     Active Substance: APREPITANT
     Indication: Vomiting
     Dosage: 80 MG, 1X/DAY
     Route: 048
     Dates: start: 20220801, end: 20221202
  3. CYCLOPHOSPHAMIDE [Suspect]
     Active Substance: CYCLOPHOSPHAMIDE
     Indication: Breast cancer
     Dosage: 600 MG/M2, CYCLIC (D1-D21)
     Route: 042
     Dates: start: 20221013, end: 20221202
  4. KEYTRUDA [Suspect]
     Active Substance: PEMBROLIZUMAB
     Indication: Breast cancer
     Dosage: 200 MG, CYCLIC (D1 - D21)
     Route: 042
     Dates: start: 20220801, end: 20221202

REACTIONS (2)
  - Septic shock [Fatal]
  - Multiple organ dysfunction syndrome [Fatal]

NARRATIVE: CASE EVENT DATE: 20221210
